FAERS Safety Report 9235122 (Version 1)
Quarter: 2013Q2

REPORT INFORMATION
  Report Type: Spontaneous
  Country: US (occurrence: US)
  Receive Date: 20130416
  Receipt Date: 20130416
  Transmission Date: 20140414
  Serious: No
  Sender: FDA-Public Use
  Company Number: US-TEVA-397094USA

PATIENT
  Sex: Female
  Weight: 28.15 kg

DRUGS (11)
  1. PROAIR HFA [Suspect]
     Indication: ASTHMA
     Dosage: 2 PUFFS
  2. QVAR [Suspect]
  3. ANTIBIOTICS [Suspect]
  4. BACLOFEN [Concomitant]
     Indication: BACK PAIN
     Dosage: 10 MILLIGRAM DAILY;
  5. BACLOFEN [Concomitant]
     Indication: INTERVERTEBRAL DISC DEGENERATION
  6. CETIRIZINE [Concomitant]
     Indication: ANTIALLERGIC THERAPY
  7. NASONEX [Concomitant]
     Indication: HYPERSENSITIVITY
     Dosage: 2 PUFFS
  8. SINGULAIR [Concomitant]
     Indication: BACK PAIN
  9. SULINDAC [Concomitant]
     Indication: BACK PAIN
  10. TRIAMCINOLONE ACETONIDE [Concomitant]
  11. ZOSTAVAX [Concomitant]
     Indication: HERPES ZOSTER

REACTIONS (7)
  - Ear infection [Unknown]
  - Drug ineffective [Unknown]
  - Inappropriate schedule of drug administration [Unknown]
  - Diarrhoea [Unknown]
  - Ear pain [Unknown]
  - Otorrhoea [Unknown]
  - Malaise [Unknown]
